FAERS Safety Report 13501483 (Version 1)
Quarter: 2017Q2

REPORT INFORMATION
  Report Type: Spontaneous
  Country: US (occurrence: US)
  Receive Date: 20170501
  Receipt Date: 20170501
  Transmission Date: 20170830
  Serious: No
  Sender: FDA-Public Use
  Company Number: US-ROCHE-1863411

PATIENT
  Age: 55 Year
  Sex: Male
  Weight: 92 kg

DRUGS (5)
  1. ESBRIET [Suspect]
     Active Substance: PIRFENIDONE
     Indication: PRODUCT USED FOR UNKNOWN INDICATION
     Route: 048
     Dates: start: 20160310, end: 20161121
  2. ONDANSETRON [Concomitant]
     Active Substance: ONDANSETRON
  3. LANTUS [Concomitant]
     Active Substance: INSULIN GLARGINE
  4. LISINOPRIL. [Concomitant]
     Active Substance: LISINOPRIL
  5. ESBRIET [Suspect]
     Active Substance: PIRFENIDONE
     Dosage: 4-6 TABS TOTAL; 2 TABS BID-TID
     Route: 048
     Dates: start: 20160215

REACTIONS (1)
  - Muscle spasms [Unknown]

NARRATIVE: CASE EVENT DATE: 20160310
